FAERS Safety Report 6243885-9 (Version None)
Quarter: 2009Q2

REPORT INFORMATION
  Report Type: 
  Country: None (occurrence: None)
  Receive Date: 20090623
  Receipt Date: 20090616
  Transmission Date: 20091009
  Serious: Yes (Other)
  Sender: FDA-Public Use
  Company Number: CHPA2009US13618

PATIENT
  Age: 82 Year
  Sex: Male
  Weight: 61.2 kg

DRUGS (4)
  1. ASPIRIN [Suspect]
     Indication: ANTICOAGULANT THERAPY
     Dosage: 325 MG, QD, ORAL
     Route: 048
  2. OMEPRAZOLE [Concomitant]
  3. SIMVASTATIN [Concomitant]
  4. SERTRALINE [Concomitant]

REACTIONS (5)
  - CATARACT [None]
  - HYPERTENSION [None]
  - INTENTIONAL DRUG MISUSE [None]
  - OFF LABEL USE [None]
  - PARKINSON'S DISEASE [None]
